FAERS Safety Report 6091687-9 (Version None)
Quarter: 2009Q1

REPORT INFORMATION
  Report Type: 
  Country: None (occurrence: None)
  Receive Date: 20090225
  Receipt Date: 20080328
  Transmission Date: 20090719
  Serious: No
  Sender: FDA-Public Use
  Company Number: A0721417A

PATIENT
  Sex: Female

DRUGS (3)
  1. VALTREX [Suspect]
     Route: 065
  2. METHOTREXATE [Concomitant]
  3. REMICADE [Concomitant]

REACTIONS (1)
  - THERAPEUTIC RESPONSE UNEXPECTED [None]
